FAERS Safety Report 19475628 (Version 1)
Quarter: 2021Q2

REPORT INFORMATION
  Report Type: Other
  Country: US (occurrence: US)
  Receive Date: 20210630
  Receipt Date: 20210630
  Transmission Date: 20210717
  Serious: Yes (Other)
  Sender: FDA-Public Use
  Company Number: US-ROCHE-2857525

PATIENT
  Sex: Male
  Weight: 143.01 kg

DRUGS (21)
  1. XOLAIR [Suspect]
     Active Substance: OMALIZUMAB
     Indication: PEMPHIGOID
     Route: 058
  2. MECLIZINE [Concomitant]
     Active Substance: MECLIZINE HYDROCHLORIDE
  3. MORPHINE [Concomitant]
     Active Substance: MORPHINE
  4. DOXYCYCLINE MONOHYDRATE [Concomitant]
     Active Substance: DOXYCYCLINE
     Route: 048
  5. TRIAMCINOLONE [Concomitant]
     Active Substance: TRIAMCINOLONE
  6. XOLAIR [Suspect]
     Active Substance: OMALIZUMAB
  7. METOPROLOL SUCCINATE ER [Concomitant]
     Active Substance: METOPROLOL SUCCINATE
  8. ELIQUIS [Concomitant]
     Active Substance: APIXABAN
  9. SILDENAFIL. [Concomitant]
     Active Substance: SILDENAFIL
  10. LANTUS [Concomitant]
     Active Substance: INSULIN GLARGINE
  11. PREDNISONE. [Concomitant]
     Active Substance: PREDNISONE
     Route: 048
  12. PREDNISONE. [Concomitant]
     Active Substance: PREDNISONE
     Route: 048
  13. BACTROBAN [Concomitant]
     Active Substance: MUPIROCIN\MUPIROCIN CALCIUM
  14. BUPROPION. [Concomitant]
     Active Substance: BUPROPION
  15. METFORMIN [Concomitant]
     Active Substance: METFORMIN HYDROCHLORIDE
  16. LOVENOX [Concomitant]
     Active Substance: ENOXAPARIN SODIUM
  17. LIDOCAINE. [Concomitant]
     Active Substance: LIDOCAINE
  18. XOLAIR [Suspect]
     Active Substance: OMALIZUMAB
  19. GLIMEPIRIDE. [Concomitant]
     Active Substance: GLIMEPIRIDE
  20. NOVOLOG [Concomitant]
     Active Substance: INSULIN ASPART
  21. NIACINAMIDE [Concomitant]
     Active Substance: NIACINAMIDE
     Dosage: 2 TABLET ORALLY TWICE A DAILY
     Route: 048

REACTIONS (2)
  - Off label use [Unknown]
  - Dementia [Unknown]
